FAERS Safety Report 20880254 (Version 1)
Quarter: 2022Q2

REPORT INFORMATION
  Report Type: Other
  Country: CA (occurrence: None)
  Receive Date: 20220526
  Receipt Date: 20220526
  Transmission Date: 20220720
  Serious: No
  Sender: FDA-Public Use
  Company Number: CA-ROCHE-3102059

PATIENT
  Sex: Female

DRUGS (1)
  1. OCREVUS [Suspect]
     Active Substance: OCRELIZUMAB
     Indication: Relapsing-remitting multiple sclerosis
     Dosage: 300 MG AT DAY 0 AND 14, THEN 600 MG EVERY 6 MONTH
     Route: 042
     Dates: start: 20180510

REACTIONS (6)
  - Gastroenteritis viral [Unknown]
  - Body temperature increased [Unknown]
  - Decreased appetite [Unknown]
  - Influenza [Unknown]
  - Stress [Unknown]
  - Therapeutic response shortened [Unknown]
